FAERS Safety Report 6921300-7 (Version None)
Quarter: 2010Q3

REPORT INFORMATION
  Report Type: 
  Country: None (occurrence: None)
  Receive Date: 20100812
  Receipt Date: 20100805
  Transmission Date: 20110219
  Serious: Yes (Hospitalization)
  Sender: FDA-Public Use
  Company Number: B0668633A

PATIENT
  Sex: Female

DRUGS (4)
  1. ZOPHREN [Suspect]
     Indication: PRODUCT USED FOR UNKNOWN INDICATION
     Dosage: 8MG SINGLE DOSE
     Route: 042
     Dates: start: 20100615, end: 20100615
  2. CYCLOPHOSPHAMIDE [Suspect]
     Dosage: 700MG SINGLE DOSE
     Route: 042
     Dates: start: 20100615, end: 20100615
  3. METHYLPREDNISOLONE [Suspect]
     Indication: PREMEDICATION
     Dosage: 60MG SINGLE DOSE
     Route: 042
     Dates: start: 20100615, end: 20100615
  4. CARBOPLATIN [Suspect]
     Dosage: 350MG SINGLE DOSE
     Route: 042
     Dates: start: 20100615, end: 20100615

REACTIONS (5)
  - ABDOMINAL PAIN [None]
  - BLOOD PRESSURE INCREASED [None]
  - HEART RATE INCREASED [None]
  - NAUSEA [None]
  - SALIVARY HYPERSECRETION [None]
